FAERS Safety Report 7401883-3 (Version None)
Quarter: 2011Q2

REPORT INFORMATION
  Report Type: 
  Country: None (occurrence: None)
  Receive Date: 20110408
  Receipt Date: 20110328
  Transmission Date: 20111010
  Serious: Yes (Hospitalization, Other)
  Sender: FDA-Public Use
  Company Number: AU-BAYER-201043286GPV

PATIENT
  Age: 65 Year
  Sex: Male
  Weight: 62 kg

DRUGS (13)
  1. ATACAND [Concomitant]
     Indication: HYPERTENSION
     Dosage: 16 MG (DAILY DOSE), QD, ORAL
     Route: 048
     Dates: start: 20020101
  2. FRUSEMIDE [Concomitant]
     Indication: OEDEMA PERIPHERAL
     Dosage: 80 MG (DAILY DOSE), QD, ORAL
     Route: 048
     Dates: start: 20100703
  3. DOMPERIDONE [Concomitant]
     Indication: DECREASED APPETITE
     Dosage: 30 MG (DAILY DOSE), QD, ORAL
     Route: 048
     Dates: start: 20100705
  4. SODIUM BICARBONATE [Concomitant]
     Indication: SUPPLEMENTATION THERAPY
     Dosage: 840 MG (DAILY DOSE), QD, ORAL
     Route: 048
     Dates: start: 20100917
  5. SORAFENIB (RAF KINASE INHIBITOR) [Suspect]
     Dosage: 400 MG (DAILY DOSE), QD, ORAL
     Route: 048
     Dates: start: 20101014, end: 20101014
  6. SORAFENIB (RAF KINASE INHIBITOR) [Suspect]
     Indication: HEPATIC NEOPLASM MALIGNANT
     Dosage: 800 MG (DAILY DOSE), QD, ORAL
     Route: 048
     Dates: start: 20050914, end: 20101013
  7. ADEFOVIR DIPIVOXIL KIT [Concomitant]
     Indication: HEPATITIS B
     Dosage: 10 MG (DAILY DOSE), QD, ORAL
     Route: 048
     Dates: start: 20030601
  8. MULTI-VITAMINS [Concomitant]
     Indication: SUPPLEMENTATION THERAPY
     Dosage: 1 DF, QD
     Route: 048
     Dates: start: 20100705
  9. FOLIC ACID [Concomitant]
     Indication: NUTRITIONAL SUPPORT
     Dosage: 0.5 MG (DAILY DOSE), QD, ORAL
     Route: 048
     Dates: start: 20100705
  10. DARBEPOETIN ALFA [Concomitant]
     Indication: NUTRITIONAL SUPPORT
     Dosage: 60 ?G (DAILY DOSE), OW, SUBCUTANEOUS
     Route: 058
     Dates: start: 20100901
  11. FERROGRADUMET [Concomitant]
     Indication: NUTRITIONAL SUPPORT
     Dosage: 325 ?G (DAILY DOSE), QD, ORAL
     Route: 048
     Dates: start: 20100917
  12. LAMIVUDINE [Concomitant]
     Indication: HEPATITIS B
     Dosage: 25 MG (DAILY DOSE), QD, ORAL
     Route: 048
     Dates: start: 20091020
  13. INNER HEALTH PLUS [Concomitant]
     Indication: NUTRITIONAL SUPPORT
     Dosage: 1 DF, QD
     Route: 048
     Dates: start: 20100705

REACTIONS (3)
  - SKIN GRAFT [None]
  - IMPAIRED HEALING [None]
  - WOUND [None]
